FAERS Safety Report 6345663-9 (Version None)
Quarter: 2009Q3

REPORT INFORMATION
  Report Type: 
  Country: None (occurrence: None)
  Receive Date: 20090821
  Receipt Date: 20090615
  Transmission Date: 20100115
  Serious: No
  Sender: FDA-Public Use
  Company Number: 8047866

PATIENT
  Sex: Female

DRUGS (1)
  1. CIMZIA [Suspect]
     Indication: CROHN'S DISEASE
     Dosage: M SC
     Route: 058
     Dates: start: 20080101

REACTIONS (1)
  - ARRHYTHMIA SUPRAVENTRICULAR [None]
